FAERS Safety Report 10565672 (Version 4)
Quarter: 2016Q1

REPORT INFORMATION
  Report Type: Report from Study
  Country: CA (occurrence: CA)
  Receive Date: 20141105
  Receipt Date: 20160115
  Transmission Date: 20160525
  Serious: Yes (Death, Life-Threatening)
  Sender: FDA-Public Use
  Company Number: CA-NOVOPROD-423968

PATIENT
  Age: 81 Year
  Sex: Male
  Weight: 101.5 kg

DRUGS (8)
  1. SOFLAX                             /00061602/ [Concomitant]
     Indication: CONSTIPATION
     Dosage: 100 MG, QD
     Route: 065
     Dates: start: 2007
  2. ASA [Concomitant]
     Active Substance: ASPIRIN
     Indication: PROPHYLAXIS
     Dosage: 162.0,MG,
     Route: 065
     Dates: start: 201401, end: 20150320
  3. CANDESARTAN [Concomitant]
     Active Substance: CANDESARTAN
     Indication: HYPERTENSION
     Dosage: 60.0,MG,
     Route: 065
     Dates: start: 20130401, end: 20141017
  4. LASIX [Concomitant]
     Active Substance: FUROSEMIDE
     Indication: FLUID RETENTION
     Dosage: 20 MG, QD
     Route: 065
     Dates: start: 20140614, end: 20141017
  5. SOFLAX                             /00061602/ [Concomitant]
     Indication: CONSTIPATION
     Dosage: 100.0,MG,
     Dates: start: 2007
  6. LIRAGLUTIDE FLEXPEN [Suspect]
     Active Substance: LIRAGLUTIDE
     Indication: TYPE 2 DIABETES MELLITUS
     Dosage: 1.8,MG,QD
     Route: 058
     Dates: start: 20110407
  7. METFORMIN [Concomitant]
     Active Substance: METFORMIN HYDROCHLORIDE
     Indication: TYPE 2 DIABETES MELLITUS
     Dosage: 1000.0,MG,
     Route: 065
     Dates: start: 1995, end: 20150301
  8. ROSUVASTATIN [Concomitant]
     Active Substance: ROSUVASTATIN
     Indication: HYPERLIPIDAEMIA
     Dosage: 20.0,MG,
     Route: 065
     Dates: start: 20130403, end: 20150320

REACTIONS (1)
  - Liposarcoma metastatic [Fatal]

NARRATIVE: CASE EVENT DATE: 20140819
